FAERS Safety Report 9405399 (Version 2)
Quarter: 2013Q4

REPORT INFORMATION
  Report Type: Spontaneous
  Country: CA (occurrence: None)
  Receive Date: 20130715
  Receipt Date: 20131022
  Transmission Date: 20140711
  Serious: Yes (Hospitalization, Other)
  Sender: FDA-Public Use
  Company Number: 2013-002190

PATIENT
  Age: 60 Year
  Sex: Female
  Weight: 59.5 kg

DRUGS (8)
  1. ACTONEL [Suspect]
     Indication: OSTEOPOROSIS
     Route: 048
     Dates: start: 201106, end: 201110
  2. LANTUS (INSULIN GLARGINE) [Concomitant]
  3. PANTOPRAZOLE (PANTOPRAZOLE) [Concomitant]
  4. DIPHENOXYLATE W/ATROPINE SULFATE [Concomitant]
  5. URSODIOL [Concomitant]
  6. WARFARIN (WARFARIN) [Concomitant]
  7. ARANESP (DARBEPOETIN ALFA) [Concomitant]
  8. HUMALOG (INSULIN LISPRO) [Concomitant]

REACTIONS (11)
  - Renal failure acute [None]
  - Chromaturia [None]
  - Glomerulonephritis [None]
  - Serum sickness [None]
  - Hypersensitivity vasculitis [None]
  - Rash [None]
  - Fatigue [None]
  - Malaise [None]
  - Decreased appetite [None]
  - Nausea [None]
  - Antineutrophil cytoplasmic antibody positive [None]
